FAERS Safety Report 9692883 (Version 1)
Quarter: 2013Q4

REPORT INFORMATION
  Report Type: Spontaneous
  Country: GB (occurrence: GB)
  Receive Date: 20131118
  Receipt Date: 20131118
  Transmission Date: 20140711
  Serious: Yes (Other)
  Sender: FDA-Public Use
  Company Number: PHHY2013GB128642

PATIENT
  Age: 56 Year
  Sex: Female

DRUGS (2)
  1. TRIAMCINOLONE [Suspect]
     Indication: PAIN IN EXTREMITY
     Route: 014
  2. LIDOCAINE [Concomitant]
     Indication: PAIN IN EXTREMITY

REACTIONS (4)
  - Joint dislocation [Recovering/Resolving]
  - Synovitis [Recovering/Resolving]
  - Foot deformity [Recovering/Resolving]
  - Skin ulcer [Unknown]
